FAERS Safety Report 5099203-5 (Version None)
Quarter: 2006Q3

REPORT INFORMATION
  Report Type: 
  Country: None (occurrence: None)
  Receive Date: 20060731
  Receipt Date: 20050819
  Transmission Date: 20061208
  Serious: Yes (Other)
  Sender: FDA-Public Use
  Company Number: 217066

PATIENT
  Age: 41 Year
  Sex: Female

DRUGS (6)
  1. HERCEPTIN [Suspect]
     Indication: BREAST CANCER METASTATIC
     Dosage: 350 MG, 1/WEEK, INTRAVENOUS
     Route: 042
     Dates: start: 20030114
  2. TAXOTERE [Concomitant]
  3. TAMOXIFEN CITRATE [Concomitant]
  4. AROMASIN [Concomitant]
  5. FEMARA [Concomitant]
  6. ARIMIDEX [Concomitant]

REACTIONS (1)
  - EJECTION FRACTION DECREASED [None]
